FAERS Safety Report 9776131 (Version 2)
Quarter: 2014Q1

REPORT INFORMATION
  Report Type: Spontaneous
  Country: JP (occurrence: None)
  Receive Date: 20131218
  Receipt Date: 20140106
  Transmission Date: 20141002
  Serious: Yes (Hospitalization)
  Sender: FDA-Public Use
  Company Number: ABR_01330_2013

PATIENT
  Age: 72 Year
  Sex: Female
  Weight: 54 kg

DRUGS (5)
  1. GLIADEL [Suspect]
     Indication: MALIGNANT GLIOMA
     Dosage: DF INTRACEREBAL
     Dates: start: 20131001, end: 20131001
  2. AMINOLEVULINIC ACID [Suspect]
     Indication: MALIGNANT GLIOMA
     Dates: start: 20131001, end: 20131001
  3. CEFAMEZIN [Suspect]
     Indication: PRODUCT USED FOR UNKNOWN INDICATION
     Dosage: DF  INTRAVENOUS (NOT OTHERWISE SPECIFIED)
     Route: 042
     Dates: start: 20131001, end: 20131004
  4. ALEVIATIN [Suspect]
     Indication: PRODUCT USED FOR UNKNOWN INDICATION
     Dosage: DF INTRAVENOUS (NOT OTHERWISE SPECIFIED)
     Route: 042
     Dates: start: 20131001, end: 20131003
  5. GASTER [Suspect]
     Indication: PRODUCT USED FOR UNKNOWN INDICATION
     Dosage: DF INTRAVENOUS (NOT OTHERWISE SPECIFIED)
     Route: 042
     Dates: start: 20131001, end: 20131005

REACTIONS (3)
  - Hyponatraemia [None]
  - Hepatic function abnormal [None]
  - Condition aggravated [None]
